FAERS Safety Report 13762418 (Version 1)
Quarter: 2017Q3

REPORT INFORMATION
  Report Type: Spontaneous
  Country: US (occurrence: US)
  Receive Date: 20170718
  Receipt Date: 20170718
  Transmission Date: 20171127
  Serious: No
  Sender: FDA-Public Use
  Company Number: US-PFIZER INC-2017305644

PATIENT
  Age: 54 Year
  Sex: Female

DRUGS (2)
  1. XELJANZ XR [Suspect]
     Active Substance: TOFACITINIB CITRATE
     Indication: RHEUMATOID ARTHRITIS
     Dosage: 66 MG, WEEKLY
     Route: 048
  2. METHOTREXATE SODIUM. [Suspect]
     Active Substance: METHOTREXATE SODIUM
     Indication: RHEUMATOID ARTHRITIS
     Dosage: 6 DF, WEEKLY
     Route: 048

REACTIONS (17)
  - Rheumatoid factor increased [Unknown]
  - Neck pain [Not Recovered/Not Resolved]
  - Arthralgia [Not Recovered/Not Resolved]
  - Nodal osteoarthritis [Unknown]
  - Dermatitis atopic [Unknown]
  - Condition aggravated [Not Recovered/Not Resolved]
  - Peripheral swelling [Recovering/Resolving]
  - Nail bed disorder [Unknown]
  - Musculoskeletal stiffness [Unknown]
  - Pain [Unknown]
  - Tendon pain [Unknown]
  - Tendon disorder [Unknown]
  - Joint swelling [Unknown]
  - Injury [Unknown]
  - Tenderness [Recovered/Resolved]
  - Fatigue [Unknown]
  - Contusion [Unknown]
